FAERS Safety Report 7298292-7 (Version None)
Quarter: 2011Q1

REPORT INFORMATION
  Report Type: 
  Country: None (occurrence: None)
  Receive Date: 20110217
  Receipt Date: 20100407
  Transmission Date: 20110831
  Serious: Yes (Other)
  Sender: FDA-Public Use
  Company Number: US-PFIZER INC-2010044761

PATIENT
  Sex: Female
  Weight: 58.957 kg

DRUGS (1)
  1. XALATAN [Suspect]
     Indication: INTRAOCULAR PRESSURE INCREASED
     Dosage: UNK
     Dates: start: 20060101

REACTIONS (2)
  - VISION BLURRED [None]
  - MUSCLE TWITCHING [None]
